FAERS Safety Report 4710985-1 (Version None)
Quarter: 2005Q3

REPORT INFORMATION
  Report Type: 
  Country: None (occurrence: None)
  Receive Date: 20050708
  Receipt Date: 20050708
  Transmission Date: 20060218
  Serious: Yes (Life-Threatening)
  Sender: FDA-Public Use
  Company Number: None

PATIENT
  Age: 46 Year
  Sex: Male
  Weight: 88.3 kg

DRUGS (2)
  1. MITOXANTRONE [Suspect]
     Indication: MULTIPLE SCLEROSIS
     Dosage: 12 MG/M2 IV Q 3 MONTH X 5 DOSES
     Dates: start: 20031201
  2. MITOXANTRONE [Suspect]
     Indication: MULTIPLE SCLEROSIS
     Dosage: 12 MG/M2 IV Q 3 MONTH X 5 DOSES
     Dates: start: 20041201

REACTIONS (1)
  - ACUTE MYELOID LEUKAEMIA [None]
